FAERS Safety Report 7921821-4 (Version None)
Quarter: 2011Q4

REPORT INFORMATION
  Report Type: 
  Country: None (occurrence: None)
  Receive Date: 20111117
  Receipt Date: 20111109
  Transmission Date: 20120403
  Serious: Yes (Other)
  Sender: FDA-Public Use
  Company Number: US-ASTRAZENECA-2011SE67765

PATIENT
  Age: 36 Year
  Sex: Male
  Weight: 72.6 kg

DRUGS (2)
  1. SYMBICORT [Suspect]
     Indication: CHRONIC OBSTRUCTIVE PULMONARY DISEASE
     Dosage: 2 PUFFS BID
     Route: 055
  2. ALBUTOL PROAIR [Concomitant]
     Indication: PROPHYLAXIS
     Dosage: 1 PUFF, 90 MCG AS NEEDED

REACTIONS (3)
  - DRUG DOSE OMISSION [None]
  - HAEMOPTYSIS [None]
  - CHEST DISCOMFORT [None]
